FAERS Safety Report 9394525 (Version 1)
Quarter: 2013Q3

REPORT INFORMATION
  Report Type: Spontaneous
  Country: US (occurrence: US)
  Receive Date: 20130711
  Receipt Date: 20130711
  Transmission Date: 20140515
  Serious: Yes (Other)
  Sender: FDA-Public Use
  Company Number: US-PFIZER INC-2013202987

PATIENT
  Age: 84 Year
  Sex: Female
  Weight: 72.6 kg

DRUGS (7)
  1. RELPAX [Suspect]
     Indication: MIGRAINE
     Dosage: 20 MG, 1X/DAY
     Route: 048
  2. ASPIRIN [Concomitant]
     Dosage: 325 MG, UNK
  3. SIMVASTATIN [Concomitant]
     Dosage: UNK
  4. LORAZEPAM [Concomitant]
     Dosage: UNK
  5. METOPROLOL [Concomitant]
     Dosage: UNK
  6. DIGOXIN [Concomitant]
     Dosage: UNK
  7. VITAMIN D [Concomitant]
     Dosage: UNK

REACTIONS (1)
  - Atrial fibrillation [Unknown]
